FAERS Safety Report 4381160-8 (Version None)
Quarter: 2004Q2

REPORT INFORMATION
  Report Type: 
  Country: None (occurrence: None)
  Receive Date: 20040621
  Receipt Date: 20040611
  Transmission Date: 20050107
  Serious: Yes (Death)
  Sender: FDA-Public Use
  Company Number: PHNU2004DE02093

PATIENT
  Age: 82 Year
  Sex: Female

DRUGS (2)
  1. IMMUNOSPORIN [Suspect]
     Indication: SKIN DISORDER
     Dosage: 2.5 MG/KG, QD
  2. METHOTREXATE [Suspect]
     Indication: SKIN DISORDER

REACTIONS (4)
  - BRONCHOPNEUMONIA [None]
  - DRUG INTERACTION [None]
  - INFECTION [None]
  - RENAL FAILURE [None]
